FAERS Safety Report 4744627-6 (Version None)
Quarter: 2005Q3

REPORT INFORMATION
  Report Type: 
  Country: None (occurrence: None)
  Receive Date: 20050811
  Receipt Date: 20041204
  Transmission Date: 20060218
  Serious: Yes (Hospitalization)
  Sender: FDA-Public Use
  Company Number: K200401866

PATIENT
  Age: 59 Year
  Sex: Female

DRUGS (4)
  1. SEPTRA [Suspect]
     Indication: CELLULITIS
     Dosage: 160/800 MG BID ORAL
     Route: 048
     Dates: start: 20041019, end: 20041001
  2. MICARDIS (BLINDED STUDY MEDICATION) (TELMISARTAN) [Concomitant]
  3. COZAAR (BLINDED STUDY MEDICATION) (LOSARTAN POTASSIUM) [Concomitant]
  4. DIURETICS [Concomitant]

REACTIONS (2)
  - HYPERKALAEMIA [None]
  - RENAL FAILURE ACUTE [None]
